FAERS Safety Report 12692838 (Version 1)
Quarter: 2016Q3

REPORT INFORMATION
  Report Type: Spontaneous
  Country: US (occurrence: US)
  Receive Date: 20160829
  Receipt Date: 20160829
  Transmission Date: 20161109
  Serious: Yes (Hospitalization)
  Sender: FDA-Public Use
  Company Number: US-ZYDUS-011969

PATIENT
  Age: 73 Year
  Sex: Female

DRUGS (4)
  1. OLANZAPINE. [Interacting]
     Active Substance: OLANZAPINE
     Indication: CONFUSIONAL STATE
     Route: 065
  2. RISPERIDONE. [Suspect]
     Active Substance: RISPERIDONE
     Indication: PRODUCT USED FOR UNKNOWN INDICATION
     Route: 065
  3. NICOTINE. [Interacting]
     Active Substance: NICOTINE
     Indication: PRODUCT USED FOR UNKNOWN INDICATION
     Dosage: ALLOWED 2 MG OF NICOTINE REPLACEMENT EVERY 2 HOURS
     Route: 065
  4. AMANTADINE [Suspect]
     Active Substance: AMANTADINE
     Indication: TREMOR
     Route: 065

REACTIONS (6)
  - Frustration tolerance decreased [Recovered/Resolved]
  - Mental status changes [Recovered/Resolved]
  - Drug interaction [Unknown]
  - Tremor [Recovered/Resolved]
  - Hallucination [Recovered/Resolved]
  - Confusional state [Recovered/Resolved]
